FAERS Safety Report 6803528-X (Version None)
Quarter: 2010Q2

REPORT INFORMATION
  Report Type: 
  Country: None (occurrence: None)
  Receive Date: 20100628
  Receipt Date: 20100616
  Transmission Date: 20101027
  Serious: Yes (Hospitalization, Other)
  Sender: FDA-Public Use
  Company Number: US-SANOFI-AVENTIS-2010SA035317

PATIENT
  Age: 79 Year
  Sex: Male

DRUGS (5)
  1. LANTUS [Suspect]
     Dosage: DOSE:28 UNIT(S)
     Route: 058
     Dates: start: 19940101, end: 20100101
  2. LANTUS [Suspect]
     Dosage: DOSE:32 UNIT(S)
     Route: 058
     Dates: start: 20100101
  3. OPTICLICK [Suspect]
     Dates: start: 19940101, end: 20100101
  4. OPTICLICK [Suspect]
     Dates: start: 20100101
  5. ALL OTHER THERAPEUTIC PRODUCTS [Concomitant]

REACTIONS (2)
  - CAROTID ARTERY DISEASE [None]
  - MYOCARDIAL INFARCTION [None]
